FAERS Safety Report 23201241 (Version 3)
Quarter: 2023Q4

REPORT INFORMATION
  Report Type: Other
  Country: US (occurrence: US)
  Receive Date: 20231118
  Receipt Date: 20231118
  Transmission Date: 20240109
  Serious: No
  Sender: FDA-Public Use
  Company Number: US-TRAVERE-2023TVT00538

PATIENT
  Age: 52 Year
  Sex: Female

DRUGS (2)
  1. FILSPARI [Suspect]
     Active Substance: SPARSENTAN
     Indication: IgA nephropathy
     Dosage: 200MG ONCE A DAY FOR 14 DAYS, THEN TAKE 2 TABLETS.
     Route: 048
     Dates: start: 20230826
  2. FILSPARI [Suspect]
     Active Substance: SPARSENTAN
     Dosage: 200MG ONCE A DAY FOR 14 DAYS, THEN TAKE 2 TABLETS.
     Route: 048

REACTIONS (9)
  - Oedema [Unknown]
  - Joint swelling [Unknown]
  - Peripheral swelling [Unknown]
  - Dyspnoea [Unknown]
  - Gait disturbance [Unknown]
  - Fatigue [Unknown]
  - Muscle spasms [Unknown]
  - Inappropriate schedule of product administration [Unknown]
  - Musculoskeletal stiffness [Unknown]
